FAERS Safety Report 13158739 (Version 19)
Quarter: 2021Q3

REPORT INFORMATION
  Report Type: Report from Study
  Country: CA (occurrence: CA)
  Receive Date: 20170127
  Receipt Date: 20210920
  Transmission Date: 20211014
  Serious: Yes (Hospitalization, Other)
  Sender: FDA-Public Use
  Company Number: CA-TAKEDA-2017TUS001663

PATIENT
  Age: 47 Year
  Sex: Female
  Weight: 60 kg

DRUGS (32)
  1. VEDOLIZUMAB [Suspect]
     Active Substance: VEDOLIZUMAB
     Dosage: 300 MILLIGRAM, Q4WEEKS
     Route: 042
  2. VEDOLIZUMAB [Suspect]
     Active Substance: VEDOLIZUMAB
     Dosage: 300 MILLIGRAM, Q4WEEKS
     Route: 042
  3. VEDOLIZUMAB [Suspect]
     Active Substance: VEDOLIZUMAB
     Dosage: 300 MILLIGRAM, Q4WEEKS
     Route: 042
  4. CALCIUM [Concomitant]
     Active Substance: CALCIUM
     Dosage: 500 MILLIGRAM
  5. INSULIN [Concomitant]
     Active Substance: INSULIN NOS
     Dosage: UNK, UNK, QID
  6. VEDOLIZUMAB [Suspect]
     Active Substance: VEDOLIZUMAB
     Dosage: 300 MILLIGRAM
     Route: 042
  7. VEDOLIZUMAB [Suspect]
     Active Substance: VEDOLIZUMAB
     Dosage: 300 MILLIGRAM, Q4WEEKS
     Route: 042
  8. OXAZEPAM. [Concomitant]
     Active Substance: OXAZEPAM
     Dosage: 15 MILLIGRAM, QD
     Dates: start: 20170622
  9. APIDRA SOLOSTAR [Concomitant]
     Active Substance: INSULIN GLULISINE
     Dosage: UNK UNK, TID
     Dates: start: 20170221
  10. HYDROMORPHONE [Concomitant]
     Active Substance: HYDROMORPHONE
     Dosage: UNK
     Dates: start: 20170426
  11. VEDOLIZUMAB [Suspect]
     Active Substance: VEDOLIZUMAB
     Dosage: 300 MILLIGRAM, Q4WEEKS
     Route: 042
  12. VEDOLIZUMAB [Suspect]
     Active Substance: VEDOLIZUMAB
     Dosage: 300 MILLIGRAM, Q4WEEKS
     Route: 042
  13. POTASSIUM [Concomitant]
     Active Substance: POTASSIUM
     Dosage: UNK
  14. EOSINE [Concomitant]
     Dosage: UNK
     Dates: start: 20170616
  15. PREDNISONE. [Concomitant]
     Active Substance: PREDNISONE
     Dosage: UNK
  16. CLOBETASOL PROPIONATE. [Concomitant]
     Active Substance: CLOBETASOL PROPIONATE
     Dosage: UNK
     Dates: start: 20170622
  17. FERROUS SULFATE. [Concomitant]
     Active Substance: FERROUS SULFATE
     Dosage: 300 MILLIGRAM, QD
     Dates: start: 20170418
  18. VEDOLIZUMAB [Suspect]
     Active Substance: VEDOLIZUMAB
     Dosage: 300 MILLIGRAM, Q4WEEKS
     Route: 042
     Dates: start: 20170622
  19. VEDOLIZUMAB [Suspect]
     Active Substance: VEDOLIZUMAB
     Dosage: 300 MILLIGRAM, Q4WEEKS
     Route: 042
  20. DAPSONE. [Concomitant]
     Active Substance: DAPSONE
     Dosage: 100 MILLIGRAM, QD
     Dates: start: 20170622
  21. METHYLPREDNISOLONE. [Concomitant]
     Active Substance: METHYLPREDNISOLONE
     Indication: PREMEDICATION
     Dosage: 80 MILLIGRAM
     Route: 042
  22. NADOLOL. [Concomitant]
     Active Substance: NADOLOL
     Dosage: 40 MILLIGRAM, QD
     Dates: start: 20161216
  23. LOPERAMIDE [Concomitant]
     Active Substance: LOPERAMIDE
     Dosage: UNK UNK, TID
     Dates: start: 20161216
  24. VEDOLIZUMAB [Suspect]
     Active Substance: VEDOLIZUMAB
     Indication: CROHN^S DISEASE
     Dosage: 300 MILLIGRAM
     Route: 042
     Dates: start: 20160503
  25. ACETAMINOPHEN. [Concomitant]
     Active Substance: ACETAMINOPHEN
     Indication: PREMEDICATION
     Dosage: 650 MILLIGRAM
     Route: 048
     Dates: start: 20170207
  26. BENADRYL [Concomitant]
     Active Substance: DIPHENHYDRAMINE HYDROCHLORIDE
     Indication: PREMEDICATION
     Dosage: 50 MILLIGRAM
     Route: 048
  27. LANTUS [Concomitant]
     Active Substance: INSULIN GLARGINE
     Dosage: UNK UNK, QD
     Route: 058
     Dates: start: 20170221
  28. PROTOPIC [Concomitant]
     Active Substance: TACROLIMUS
     Dosage: UNK
     Dates: start: 20170412
  29. VEDOLIZUMAB [Suspect]
     Active Substance: VEDOLIZUMAB
     Dosage: 300 MILLIGRAM
     Route: 042
  30. VEDOLIZUMAB [Suspect]
     Active Substance: VEDOLIZUMAB
     Dosage: 300 MILLIGRAM, Q4WEEKS
     Route: 042
  31. VEDOLIZUMAB [Suspect]
     Active Substance: VEDOLIZUMAB
     Dosage: 300 MILLIRAM, Q4WEEKS
     Route: 042
  32. VITAMIN D NOS [Concomitant]
     Active Substance: VITAMIN D NOS
     Dosage: UNK

REACTIONS (15)
  - Abdominal abscess [Recovered/Resolved]
  - Poor venous access [Unknown]
  - Infusion site oedema [Unknown]
  - Weight fluctuation [Unknown]
  - Aphthous ulcer [Recovered/Resolved]
  - Blood glucose increased [Unknown]
  - Off label use [Unknown]
  - Haematochezia [Unknown]
  - Vein rupture [Unknown]
  - Abdominal pain upper [Recovered/Resolved]
  - Headache [Recovered/Resolved]
  - Colostomy infection [Recovering/Resolving]
  - Gastrointestinal stoma output increased [Unknown]
  - Infusion site extravasation [Unknown]
  - Pyoderma gangrenosum [Not Recovered/Not Resolved]

NARRATIVE: CASE EVENT DATE: 201611
